FAERS Safety Report 19040943 (Version 9)
Quarter: 2021Q3

REPORT INFORMATION
  Report Type: Report from Study
  Country: US (occurrence: US)
  Receive Date: 20210322
  Receipt Date: 20210921
  Transmission Date: 20211014
  Serious: No
  Sender: FDA-Public Use
  Company Number: US-B.I. PHARMACEUTICALS,INC./RIDGEFIELD-2021-BI-089457

PATIENT
  Age: 77 Year
  Sex: Female

DRUGS (1)
  1. OFEV [Suspect]
     Active Substance: NINTEDANIB
     Indication: IDIOPATHIC PULMONARY FIBROSIS
     Dosage: 1 CAP BID
     Route: 048
     Dates: start: 20210207

REACTIONS (27)
  - Product dose omission issue [Not Recovered/Not Resolved]
  - Sleep disorder [Unknown]
  - Abdominal pain upper [Unknown]
  - Gait disturbance [Unknown]
  - Limb discomfort [Unknown]
  - Rheumatoid arthritis [Not Recovered/Not Resolved]
  - Feeling abnormal [Unknown]
  - Hypoaesthesia [Unknown]
  - Eye disorder [Unknown]
  - Migraine [Unknown]
  - Oxygen saturation decreased [Unknown]
  - Fatigue [Not Recovered/Not Resolved]
  - Headache [Recovered/Resolved]
  - Heart rate increased [Unknown]
  - Rectal haemorrhage [Not Recovered/Not Resolved]
  - Arthralgia [Unknown]
  - Oxygen therapy [Not Recovered/Not Resolved]
  - Hypersomnia [Unknown]
  - Taste disorder [Unknown]
  - Pain [Not Recovered/Not Resolved]
  - Visual impairment [Unknown]
  - Diarrhoea [Not Recovered/Not Resolved]
  - Chronic obstructive pulmonary disease [Not Recovered/Not Resolved]
  - Osteoarthritis [Not Recovered/Not Resolved]
  - Productive cough [Unknown]
  - Nocturia [Not Recovered/Not Resolved]
  - Musculoskeletal disorder [Unknown]

NARRATIVE: CASE EVENT DATE: 20210307
